FAERS Safety Report 7834603-9 (Version None)
Quarter: 2011Q4

REPORT INFORMATION
  Report Type: 
  Country: None (occurrence: None)
  Receive Date: 20111020
  Receipt Date: 20111011
  Transmission Date: 20120403
  Serious: Yes (Other)
  Sender: FDA-Public Use
  Company Number: 1000023141

PATIENT
  Age: 93 Year
  Sex: Female
  Weight: 52 kg

DRUGS (8)
  1. SOTALEX (SOTALOL HYDROCHLORIDE) (SOTALOL HYDROCHLORIDE) [Concomitant]
  2. MEMANTINE HYDROCHLORIDE [Suspect]
     Indication: DEMENTIA ALZHEIMER'S TYPE
     Dosage: 15 MG (15 MG,1 IN 1 D),ORAL
     Route: 048
     Dates: start: 20110530, end: 20110531
  3. EFFERALGAN (PARACETAMOL) (PARACETAMOL) [Concomitant]
  4. KARDEGIC (ACETYLSALICYLATE LYSINE) (ACETYLSALICYLATE LYSINE) [Concomitant]
  5. MEMANTINE HYDROCHLORIDE [Suspect]
     Indication: DEMENTIA ALZHEIMER'S TYPE
     Dosage: 5 MG (5 MG,1 IN 1 D),ORAL ; 10 MG (10 MG,1 IN 1 D),ORAL
     Route: 048
     Dates: end: 20110529
  6. MEMANTINE HYDROCHLORIDE [Suspect]
     Indication: DEMENTIA ALZHEIMER'S TYPE
     Dosage: 5 MG (5 MG,1 IN 1 D),ORAL ; 10 MG (10 MG,1 IN 1 D),ORAL
     Route: 048
     Dates: start: 20110505
  7. NEO-MERCAZOLE TAB [Concomitant]
  8. TRANSIPEG (MACROGOL) (MACROGOL) [Concomitant]

REACTIONS (6)
  - VOMITING [None]
  - BLOOD BILIRUBIN INCREASED [None]
  - CHOLESTASIS [None]
  - NAUSEA [None]
  - BLOOD ALKALINE PHOSPHATASE INCREASED [None]
  - GAMMA-GLUTAMYLTRANSFERASE INCREASED [None]
